FAERS Safety Report 5607665-7 (Version None)
Quarter: 2008Q1

REPORT INFORMATION
  Report Type: 
  Country: None (occurrence: None)
  Receive Date: 20080128
  Receipt Date: 20080128
  Transmission Date: 20080703
  Serious: Yes (Other)
  Sender: FDA-Public Use
  Company Number: None

PATIENT
  Sex: Male
  Weight: 79.3795 kg

DRUGS (1)
  1. CHANTIX [Suspect]
     Dosage: 1MG 2 DAILY PO
     Route: 048
     Dates: start: 20061101, end: 20070701

REACTIONS (1)
  - ARTHRALGIA [None]
